FAERS Safety Report 7736135-5 (Version None)
Quarter: 2011Q3

REPORT INFORMATION
  Report Type: 
  Country: None (occurrence: None)
  Receive Date: 20110908
  Receipt Date: 20110901
  Transmission Date: 20111222
  Serious: Yes (Hospitalization)
  Sender: FDA-Public Use
  Company Number: US-BAYER-2011-071192

PATIENT
  Age: 56 Year
  Sex: Male

DRUGS (1)
  1. NEXAVAR [Suspect]
     Indication: HEPATIC NEOPLASM MALIGNANT
     Dosage: 400 MG, BID
     Route: 048
     Dates: start: 20110801

REACTIONS (7)
  - LOSS OF CONSCIOUSNESS [None]
  - PRURITUS [None]
  - FATIGUE [None]
  - HAEMOGLOBIN DECREASED [None]
  - DYSPEPSIA [None]
  - NAUSEA [None]
  - HEAD INJURY [None]
